FAERS Safety Report 10574524 (Version 1)
Quarter: 2014Q4

REPORT INFORMATION
  Report Type: Spontaneous
  Country: US (occurrence: US)
  Receive Date: 20141110
  Receipt Date: 20141110
  Transmission Date: 20150529
  Serious: Yes (Hospitalization, Other)
  Sender: FDA-Public Use
  Company Number: US-SHIRE-US201407528

PATIENT
  Age: 71 Year
  Sex: Male
  Weight: 101.13 kg

DRUGS (3)
  1. OTHER DRUGS USED IN DIABETES [Concomitant]
     Indication: DIABETES MELLITUS
     Dosage: UNK, UNKNOWN
     Route: 065
  2. LIALDA [Suspect]
     Active Substance: MESALAMINE
     Indication: DIARRHOEA
  3. LIALDA [Suspect]
     Active Substance: MESALAMINE
     Indication: DIVERTICULITIS
     Dosage: 2.4 G, (TWO TABLETS) (PER DAY)
     Route: 048
     Dates: start: 2014, end: 2014

REACTIONS (4)
  - Intestinal perforation [Unknown]
  - Product use issue [Recovered/Resolved]
  - Abnormal loss of weight [Unknown]
  - Crohn^s disease [Unknown]

NARRATIVE: CASE EVENT DATE: 2014
